FAERS Safety Report 9938108 (Version 1)
Quarter: 2014Q1

REPORT INFORMATION
  Report Type: Spontaneous
  Country: US (occurrence: US)
  Receive Date: 20140303
  Receipt Date: 20140303
  Transmission Date: 20141002
  Serious: Yes (Hospitalization)
  Sender: FDA-Public Use
  Company Number: US-JNJFOC-20140214070

PATIENT
  Sex: Female
  Weight: 63.5 kg

DRUGS (4)
  1. PANCREAZE [Suspect]
     Indication: PANCREATIC DUCT OBSTRUCTION
     Route: 048
     Dates: end: 2013
  2. PANCREAZE [Suspect]
     Indication: PANCREATIC DUCT OBSTRUCTION
     Route: 048
     Dates: start: 20131215
  3. FLAGYL [Concomitant]
     Indication: INFECTION
     Route: 048
     Dates: start: 20140217
  4. ALPRAZOLAM [Concomitant]
     Indication: ANXIETY
     Route: 048

REACTIONS (2)
  - Impaired gastric emptying [Recovered/Resolved]
  - Condition aggravated [Unknown]
